FAERS Safety Report 6961077-2 (Version None)
Quarter: 2010Q3

REPORT INFORMATION
  Report Type: 
  Country: None (occurrence: None)
  Receive Date: 20100830
  Receipt Date: 20100816
  Transmission Date: 20110219
  Serious: Yes (Death, Hospitalization)
  Sender: FDA-Public Use
  Company Number: A-NJ2010-38838

PATIENT
  Age: 73 Year
  Sex: Female

DRUGS (3)
  1. VENTAVIS [Suspect]
     Indication: PULMONARY ARTERIAL HYPERTENSION
     Dosage: RESPIRATORY
     Route: 055
     Dates: start: 20080411
  2. TADALAFIL (TADALAFIL) [Concomitant]
  3. CALCIUM CHANNEL BLOCKERS [Concomitant]

REACTIONS (1)
  - CARDIAC PROCEDURE COMPLICATION [None]
